FAERS Safety Report 9767736 (Version 3)
Quarter: 2015Q3

REPORT INFORMATION
  Report Type: Spontaneous
  Country: US (occurrence: US)
  Receive Date: 20131217
  Receipt Date: 20150731
  Transmission Date: 20151125
  Serious: Yes (Other)
  Sender: FDA-Public Use
  Company Number: US-BMSGILMSD-2009-0024445

PATIENT
  Age: 47 Year
  Sex: Male
  Weight: 70.76 kg

DRUGS (15)
  1. VIDEX EC [Concomitant]
     Active Substance: DIDANOSINE
     Indication: HIV INFECTION
     Dates: start: 200205
  2. MEGACE [Concomitant]
     Active Substance: MEGESTROL ACETATE
  3. VIREAD [Suspect]
     Active Substance: TENOFOVIR DISOPROXIL FUMARATE
     Indication: HIV INFECTION
     Route: 048
     Dates: start: 200205, end: 20060406
  4. NEURONTIN [Concomitant]
     Active Substance: GABAPENTIN
  5. MULTIVITAMIN/MINERAL TABLET [Concomitant]
  6. OXYCONTIN [Concomitant]
     Active Substance: OXYCODONE HYDROCHLORIDE
  7. MIACALCIN [Concomitant]
     Active Substance: CALCITONIN SALMON
  8. GLUCERNA [Concomitant]
     Active Substance: AMINO ACIDS\DEXTROSE\ELECTROLYTES NOS\SOYBEAN OIL\VITAMINS
  9. TRAZODONE [Concomitant]
     Active Substance: TRAZODONE HYDROCHLORIDE
  10. PARACETAMOL/HYDROCODONE BITARTRATE [Concomitant]
     Indication: PAIN
  11. FLONASE [Concomitant]
     Active Substance: FLUTICASONE PROPIONATE
  12. MEPRON [Concomitant]
     Active Substance: ATOVAQUONE
  13. LOPINAVIR WITH RITONAVIR [Concomitant]
     Active Substance: LOPINAVIR\RITONAVIR
     Indication: HIV INFECTION
     Dates: start: 200205
  14. OSCAL [Concomitant]
     Active Substance: CALCIUM CARBONATE
  15. COMPAZINE [Concomitant]
     Active Substance: PROCHLORPERAZINE MALEATE
     Indication: NAUSEA

REACTIONS (5)
  - Hypophosphataemia [Unknown]
  - Fanconi syndrome acquired [Unknown]
  - Renal failure [Unknown]
  - Osteomalacia [Unknown]
  - Bone pain [Unknown]

NARRATIVE: CASE EVENT DATE: 20060406
